FAERS Safety Report 19968676 (Version 1)
Quarter: 2021Q4

REPORT INFORMATION
  Report Type: Spontaneous
  Country: US (occurrence: US)
  Receive Date: 20211019
  Receipt Date: 20211019
  Transmission Date: 20220303
  Serious: Yes (Hospitalization, Other)
  Sender: FDA-Public Use
  Company Number: US-ASTELLAS-2021US031773

PATIENT
  Age: 55 Year
  Sex: Female
  Weight: 53 kg

DRUGS (1)
  1. TACROLIMUS [Suspect]
     Active Substance: TACROLIMUS
     Indication: Heart transplant
     Dosage: UNK UNK (DIFFERENT DOSE AT 2 DIFFERENT TIMES), TWICE DAILY
     Route: 048
     Dates: end: 20200318

REACTIONS (6)
  - Brain oedema [Recovered/Resolved]
  - Seizure [Unknown]
  - Procedural complication [Recovered/Resolved]
  - Blood glucose increased [Unknown]
  - Drug hypersensitivity [Unknown]
  - Transplant failure [Recovered/Resolved]

NARRATIVE: CASE EVENT DATE: 20080701
